FAERS Safety Report 5963597-6 (Version None)
Quarter: 2008Q4

REPORT INFORMATION
  Report Type: 
  Country: None (occurrence: None)
  Receive Date: 20081124
  Receipt Date: 20081111
  Transmission Date: 20090506
  Serious: Yes (Hospitalization, Other)
  Sender: FDA-Public Use
  Company Number: GB-ROCHE-591210

PATIENT
  Sex: Male

DRUGS (9)
  1. BONIVA [Suspect]
     Indication: OSTEOPOROSIS
     Route: 048
     Dates: start: 20070608
  2. PREDNISOLONE [Suspect]
     Indication: COGAN'S SYNDROME
     Dosage: REPORTED AS PREDNISOLE
     Route: 048
     Dates: start: 20081001
  3. METFORMIN HCL [Concomitant]
     Indication: DIABETES MELLITUS
     Route: 048
  4. GLYCLAZIDE [Concomitant]
     Indication: DIABETES MELLITUS
     Route: 048
  5. LANSOPRAZOLE [Concomitant]
     Indication: HIATUS HERNIA
     Route: 048
  6. VOLTAREN [Concomitant]
     Indication: ANALGESIA
     Route: 048
  7. ACETAMINOPHEN W/ CODEINE [Concomitant]
     Indication: ANALGESIA
     Dosage: 30/500MG AS REQUIRED
     Route: 048
  8. MAXIDEX [Concomitant]
     Indication: COGAN'S SYNDROME
     Route: 047
  9. FLU JAB [Concomitant]
     Dates: start: 20081110

REACTIONS (9)
  - BONE PAIN [None]
  - COGAN'S SYNDROME [None]
  - CONFUSIONAL STATE [None]
  - DELIRIUM [None]
  - HALLUCINATION [None]
  - HEADACHE [None]
  - PHOTOPSIA [None]
  - PYREXIA [None]
  - TOOTH DISORDER [None]
